FAERS Safety Report 25799781 (Version 3)
Quarter: 2025Q3

REPORT INFORMATION
  Report Type: Spontaneous
  Country: US (occurrence: US)
  Receive Date: 20250914
  Receipt Date: 20250927
  Transmission Date: 20251020
  Serious: No
  Sender: SANOFI AVENTIS
  Company Number: US-SANOFI-02647547

PATIENT
  Age: 54 Year
  Sex: Male

DRUGS (1)
  1. LANTUS [Suspect]
     Active Substance: INSULIN GLARGINE
     Indication: Diabetes mellitus
     Route: 065
     Dates: start: 20250807, end: 20250812

REACTIONS (7)
  - Dry mouth [Unknown]
  - Oesophagitis [Unknown]
  - Taste disorder [Unknown]
  - Headache [Unknown]
  - Abdominal discomfort [Unknown]
  - Muscle tightness [Unknown]
  - Blood glucose increased [Unknown]

NARRATIVE: CASE EVENT DATE: 20250807
